FAERS Safety Report 22653090 (Version 1)
Quarter: 2023Q2

REPORT INFORMATION
  Report Type: Spontaneous
  Country: None (occurrence: US)
  Receive Date: 20230629
  Receipt Date: 20230629
  Transmission Date: 20230721
  Serious: Yes (Hospitalization, Other)
  Sender: FDA-Public Use
  Company Number: US-Oxford Pharmaceuticals, LLC-2143230

PATIENT
  Age: 67 Year
  Sex: Male

DRUGS (10)
  1. PRIMIDONE [Suspect]
     Active Substance: PRIMIDONE
     Indication: Essential tremor
     Route: 065
  2. TICAGRELOR [Suspect]
     Active Substance: TICAGRELOR
     Route: 065
  3. ASPIRIN [Concomitant]
     Active Substance: ASPIRIN
     Route: 065
  4. METOPROLOL SUCCINATE [Concomitant]
     Active Substance: METOPROLOL SUCCINATE
  5. LOSARTAN [Concomitant]
     Active Substance: LOSARTAN
  6. AMLODIPINE [Concomitant]
     Active Substance: AMLODIPINE BESYLATE
  7. ATORVASTATIN [Concomitant]
     Active Substance: ATORVASTATIN
  8. GABAPENTIN [Concomitant]
     Active Substance: GABAPENTIN
  9. FOLIC ACID [Concomitant]
     Active Substance: FOLIC ACID
  10. NITROGLYCERIN [Concomitant]
     Active Substance: NITROGLYCERIN

REACTIONS (2)
  - Vascular stent thrombosis [Recovering/Resolving]
  - Drug interaction [Unknown]
